FAERS Safety Report 21385721 (Version 1)
Quarter: 2022Q3

REPORT INFORMATION
  Report Type: Spontaneous
  Country: DE (occurrence: DE)
  Receive Date: 20220928
  Receipt Date: 20220928
  Transmission Date: 20221026
  Serious: Yes (Hospitalization)
  Sender: FDA-Public Use
  Company Number: DE-NOVARTISPH-NVSC2022DE216475

PATIENT
  Age: 60 Year
  Sex: Female
  Weight: 98 kg

DRUGS (5)
  1. LEFLUNOMIDE [Suspect]
     Active Substance: LEFLUNOMIDE
     Indication: Rheumatic disorder
     Dosage: UNK, QD (1-0-0-0)
     Route: 048
  2. BISOPROLOL [Suspect]
     Active Substance: BISOPROLOL
     Indication: Product used for unknown indication
     Dosage: 1.25 MG, BID (1-0-1-0)
     Route: 048
  3. ELIQUIS [Concomitant]
     Active Substance: APIXABAN
     Indication: Product used for unknown indication
     Dosage: 5 MG, BID (1-0-1-0)
     Route: 048
  4. POTASSIUM CITRATE [Concomitant]
     Active Substance: POTASSIUM CITRATE
     Indication: Product used for unknown indication
     Dosage: UNK, QD (1-0-0-0)
     Route: 048
  5. METAMIZOL [Concomitant]
     Active Substance: METAMIZOLE SODIUM
     Indication: Product used for unknown indication
     Dosage: 500 MG, PRN (IF NECESSARY)
     Route: 048

REACTIONS (8)
  - Blood pressure fluctuation [Unknown]
  - Dyspnoea exertional [Unknown]
  - Chest discomfort [Unknown]
  - Palpitations [Unknown]
  - Cardiac failure chronic [Unknown]
  - Cardiac failure [Unknown]
  - Cardiac failure [Unknown]
  - Dizziness [Unknown]
